FAERS Safety Report 26212702 (Version 1)
Quarter: 2025Q4

REPORT INFORMATION
  Report Type: Report from Study
  Country: CA (occurrence: CA)
  Receive Date: 20251230
  Receipt Date: 20251230
  Transmission Date: 20260118
  Serious: Yes (Death, Other)
  Sender: MERZ
  Company Number: CA-ACORDA THERAPEUTICS IRELAND LIMITED-ACO_180057_2025

PATIENT
  Sex: Female

DRUGS (1)
  1. DALFAMPRIDINE [Suspect]
     Active Substance: DALFAMPRIDINE
     Indication: Secondary progressive multiple sclerosis
     Dosage: 10 MILLIGRAM, Q 12 HRS
     Route: 048
     Dates: start: 20131004

REACTIONS (1)
  - Death [Fatal]
